FAERS Safety Report 10583275 (Version 1)
Quarter: 2014Q4

REPORT INFORMATION
  Report Type: Spontaneous
  Country: FR (occurrence: FR)
  Receive Date: 20141114
  Receipt Date: 20141114
  Transmission Date: 20150529
  Serious: Yes (Hospitalization, Other)
  Sender: FDA-Public Use
  Company Number: FR-ELI_LILLY_AND_COMPANY-FR201410012171

PATIENT
  Age: 76 Year
  Sex: Female

DRUGS (11)
  1. XATRAL [Concomitant]
     Active Substance: ALFUZOSIN
     Dosage: 10 MG, QD
     Route: 065
  2. KARDEGIC [Suspect]
     Active Substance: ASPIRIN LYSINE
     Indication: ACUTE CORONARY SYNDROME
     Dosage: 75 MG, QD
     Route: 048
  3. PERINDOPRIL [Concomitant]
     Active Substance: PERINDOPRIL
     Dosage: 4 MG, QD
     Route: 065
  4. MODOPAR [Concomitant]
     Active Substance: BENSERAZIDE HYDROCHLORIDE\LEVODOPA
     Dosage: 62.5 MG, BID
     Route: 065
  5. TAHOR [Concomitant]
     Active Substance: ATORVASTATIN CALCIUM
     Dosage: 80 MG, QD
     Route: 065
  6. CYMBALTA [Suspect]
     Active Substance: DULOXETINE HYDROCHLORIDE
     Indication: PRODUCT USED FOR UNKNOWN INDICATION
     Dosage: 60 MG, QD
     Route: 048
  7. MODOPAR [Concomitant]
     Active Substance: BENSERAZIDE HYDROCHLORIDE\LEVODOPA
     Dosage: 125 MG, QD
     Route: 065
  8. VESICARE [Concomitant]
     Active Substance: SOLIFENACIN SUCCINATE
     Dosage: 5 MG, QD
     Route: 065
  9. PLAVIX [Suspect]
     Active Substance: CLOPIDOGREL BISULFATE
     Indication: ACUTE CORONARY SYNDROME
     Dosage: 75 MG, QD
     Route: 048
  10. AMLOR [Concomitant]
     Active Substance: AMLODIPINE BESYLATE
     Dosage: 10 MG, QD
     Route: 065
  11. PANTOPRAZOLE [Concomitant]
     Active Substance: PANTOPRAZOLE SODIUM
     Dosage: 40 MG, QD
     Route: 065

REACTIONS (3)
  - Anaemia [Recovering/Resolving]
  - Thrombosis [Unknown]
  - Haematuria [Recovered/Resolved]

NARRATIVE: CASE EVENT DATE: 20140329
